FAERS Safety Report 17154779 (Version 1)
Quarter: 2019Q4

REPORT INFORMATION
  Report Type: Spontaneous
  Country: US (occurrence: US)
  Receive Date: 20191214
  Receipt Date: 20191214
  Transmission Date: 20200122
  Serious: Yes (Hospitalization)
  Sender: FDA-Public Use
  Company Number: US-UNITED THERAPEUTICS-UNT-2019-019422

PATIENT
  Age: 55 Year
  Sex: Female
  Weight: 56.24 kg

DRUGS (2)
  1. REMODULIN [Suspect]
     Active Substance: TREPROSTINIL
     Indication: PULMONARY ARTERIAL HYPERTENSION
     Dosage: 0.12 ?G/KG, CONTINUING
     Route: 058
     Dates: start: 20181018
  2. REMODULIN [Suspect]
     Active Substance: TREPROSTINIL
     Dosage: UNK, CONTINUING
     Route: 058

REACTIONS (3)
  - Pain [Unknown]
  - Asthenia [Unknown]
  - Gait inability [Unknown]

NARRATIVE: CASE EVENT DATE: 20191204
